FAERS Safety Report 24003772 (Version 1)
Quarter: 2024Q2

REPORT INFORMATION
  Report Type: Spontaneous
  Country: FR (occurrence: FR)
  Receive Date: 20240624
  Receipt Date: 20240624
  Transmission Date: 20240716
  Serious: Yes (Hospitalization)
  Sender: FDA-Public Use
  Company Number: None

PATIENT
  Age: 75 Year
  Sex: Female

DRUGS (7)
  1. HYDROXYUREA [Suspect]
     Active Substance: HYDROXYUREA
     Indication: Essential thrombocythaemia
     Dosage: DODAGE FORM-1FP?1 TABLET/DAY IN THE EVENING INTRODUCED ON 03/27/2024?DAILY DOSE: 500 MILLIGRAM
     Route: 048
     Dates: start: 20240327, end: 20240420
  2. HYDROXYUREA [Suspect]
     Active Substance: HYDROXYUREA
     Indication: Essential thrombocythaemia
     Dosage: 500MG/D, DODAGE FORM-1FP?1 TABLET/DAY IN THE EVENING INTRODUCED ON 03/27/2024
     Route: 048
     Dates: start: 20240506, end: 20240512
  3. ASPIRIN [Suspect]
     Active Substance: ASPIRIN
     Dosage: 1 TABLET AFTER LUNCH/D INTRODUCED ON 03/27/2024?DAILY DOSE: 1 DOSAGE FORM
     Dates: start: 20240327
  4. HYDROCHLOROTHIAZIDE\IRBESARTAN [Suspect]
     Active Substance: HYDROCHLOROTHIAZIDE\IRBESARTAN
     Dosage: 1 TABLET/DAY?DAILY DOSE: 1 DOSAGE FORM
  5. CHOLECALCIFEROL [Suspect]
     Active Substance: CHOLECALCIFEROL
     Dosage: 80000 IU/2 MOL SOL DRINK
  6. ATORVASTATIN [Suspect]
     Active Substance: ATORVASTATIN
     Dosage: 1 TAB IN THE EVENING?DAILY DOSE: 10 MILLIGRAM
  7. FOLIC ACID [Suspect]
     Active Substance: FOLIC ACID
     Dosage: 1 TAB IN THE MORNING?DAILY DOSE: 0.4 MILLIGRAM

REACTIONS (4)
  - Immune reconstitution inflammatory syndrome [Not Recovered/Not Resolved]
  - Pyrexia [Not Recovered/Not Resolved]
  - Hypokalaemia [Unknown]
  - Subarachnoid haemorrhage [Unknown]

NARRATIVE: CASE EVENT DATE: 20240419
